FAERS Safety Report 6859643-8 (Version None)
Quarter: 2010Q3

REPORT INFORMATION
  Report Type: 
  Country: None (occurrence: None)
  Receive Date: 20100719
  Receipt Date: 20090218
  Transmission Date: 20110219
  Serious: No
  Sender: FDA-Public Use
  Company Number: US-PFIZER INC-2008019880

PATIENT
  Sex: Female
  Weight: 50.34 kg

DRUGS (2)
  1. CHANTIX [Suspect]
     Indication: SMOKING CESSATION THERAPY
     Dosage: UNK
     Dates: start: 20080101
  2. PREDNISONE [Concomitant]

REACTIONS (14)
  - APATHY [None]
  - BRADYPHRENIA [None]
  - COGNITIVE DISORDER [None]
  - DISTURBANCE IN ATTENTION [None]
  - FEELING ABNORMAL [None]
  - HYPOGEUSIA [None]
  - HYPOSMIA [None]
  - LETHARGY [None]
  - MEMORY IMPAIRMENT [None]
  - PERSONALITY CHANGE [None]
  - PRODUCTIVE COUGH [None]
  - SLEEP DISORDER [None]
  - TONGUE COATED [None]
  - WEIGHT INCREASED [None]
